FAERS Safety Report 12195390 (Version 2)
Quarter: 2016Q3

REPORT INFORMATION
  Report Type: Spontaneous
  Country: DE (occurrence: DE)
  Receive Date: 20160321
  Receipt Date: 20160923
  Transmission Date: 20161109
  Serious: Yes (Hospitalization, Other)
  Sender: FDA-Public Use
  Company Number: DE-JNJFOC-20160313207

PATIENT
  Age: 67 Year
  Sex: Male

DRUGS (35)
  1. METRONIDAZOLE. [Concomitant]
     Active Substance: METRONIDAZOLE
     Route: 065
     Dates: start: 20120104
  2. PANTOPRAZOLE [Concomitant]
     Active Substance: PANTOPRAZOLE SODIUM
     Route: 065
     Dates: start: 20131204
  3. CLOTRIMAZOLE. [Concomitant]
     Active Substance: CLOTRIMAZOLE
     Route: 065
     Dates: start: 201412
  4. CLOTRIMAZOLE. [Concomitant]
     Active Substance: CLOTRIMAZOLE
     Route: 065
     Dates: start: 20140408
  5. PSORCUTAN BETA [Concomitant]
     Indication: PSORIASIS
     Route: 065
     Dates: start: 20090309
  6. HYDROCODONE [Concomitant]
     Active Substance: HYDROCODONE
     Route: 065
     Dates: start: 20111130
  7. AMOXICILLIN. [Concomitant]
     Active Substance: AMOXICILLIN
     Route: 065
     Dates: start: 20150129
  8. OMEPRAZOLE. [Concomitant]
     Active Substance: OMEPRAZOLE
     Route: 065
     Dates: start: 20150622
  9. FUCIDINE [Concomitant]
     Active Substance: FUSIDIC ACID
     Indication: BENIGN PROSTATIC HYPERPLASIA
     Route: 065
     Dates: start: 20081230
  10. GENTAMICIN SULFATE. [Concomitant]
     Active Substance: GENTAMICIN SULFATE
     Route: 065
     Dates: start: 20141204
  11. PSORCUTAN BETA [Concomitant]
     Indication: PSORIASIS
     Route: 065
     Dates: start: 20100114
  12. AZITHROMYCIN ANHYDROUS. [Concomitant]
     Active Substance: AZITHROMYCIN ANHYDROUS
     Route: 065
     Dates: start: 20111121
  13. AMOXICILLIN. [Concomitant]
     Active Substance: AMOXICILLIN
     Route: 065
     Dates: start: 20151027
  14. ACYCLOVIR. [Concomitant]
     Active Substance: ACYCLOVIR
     Dosage: AS NEEDED
     Route: 065
     Dates: start: 20160206
  15. TRIAMCINOLONE ACETONIDE. [Concomitant]
     Active Substance: TRIAMCINOLONE ACETONIDE
     Route: 065
     Dates: start: 20140408
  16. OMEPRAZOLE. [Concomitant]
     Active Substance: OMEPRAZOLE
     Route: 065
     Dates: start: 20151221
  17. STELARA [Suspect]
     Active Substance: USTEKINUMAB
     Indication: PSORIASIS
     Route: 058
     Dates: start: 201103, end: 20160217
  18. VOMEX A [Concomitant]
     Active Substance: DIMENHYDRINATE
     Route: 065
  19. GENTAMYCIN SULFATE [Concomitant]
     Active Substance: GENTAMICIN SULFATE
     Route: 065
     Dates: start: 20140408
  20. CLINDAMYCIN [Concomitant]
     Active Substance: CLINDAMYCIN\CLINDAMYCIN PHOSPHATE
     Route: 065
     Dates: start: 20151103
  21. FUCIDINE [Concomitant]
     Active Substance: FUSIDIC ACID
     Indication: BENIGN PROSTATIC HYPERPLASIA
     Route: 065
     Dates: start: 20080225
  22. PSORCUTAN BETA [Concomitant]
     Indication: SKIN DISORDER
     Route: 065
     Dates: start: 20100114
  23. OMEPRAZOLE. [Concomitant]
     Active Substance: OMEPRAZOLE
     Route: 065
     Dates: start: 20150911
  24. STELARA [Suspect]
     Active Substance: USTEKINUMAB
     Indication: PSORIASIS
     Route: 058
     Dates: start: 20151125
  25. PSORCUTAN BETA [Concomitant]
     Indication: SKIN DISORDER
     Route: 065
     Dates: start: 20090309
  26. AMOXICILLIN. [Concomitant]
     Active Substance: AMOXICILLIN
     Route: 065
     Dates: start: 20150402
  27. AMOXICILLIN. [Concomitant]
     Active Substance: AMOXICILLIN
     Route: 065
     Dates: start: 20120326
  28. PARACODINE [Concomitant]
     Active Substance: DIHYDROCODEINE BITARTRATE
     Dosage: AS NEEDED
     Route: 065
  29. PARACODINE [Concomitant]
     Active Substance: DIHYDROCODEINE BITARTRATE
     Dosage: AS NEEDED
     Route: 065
  30. TRIAMCINOLONE ACETONIDE. [Concomitant]
     Active Substance: TRIAMCINOLONE ACETONIDE
     Route: 065
     Dates: start: 201412
  31. SPIRIVA [Concomitant]
     Active Substance: TIOTROPIUM BROMIDE MONOHYDRATE
     Route: 065
     Dates: start: 20151210
  32. HYDROCODONE [Concomitant]
     Active Substance: HYDROCODONE
     Route: 065
     Dates: start: 20111130
  33. OMEPRAZOLE. [Concomitant]
     Active Substance: OMEPRAZOLE
     Route: 065
     Dates: start: 20141002
  34. ROXITHROMYCIN [Concomitant]
     Active Substance: ROXITHROMYCIN
     Route: 065
  35. SPIRIVA [Concomitant]
     Active Substance: TIOTROPIUM BROMIDE MONOHYDRATE
     Route: 065
     Dates: start: 20160304

REACTIONS (23)
  - Gastrooesophageal reflux disease [Unknown]
  - Chest pain [Unknown]
  - Lung neoplasm [Recovering/Resolving]
  - Pneumonia [Not Recovered/Not Resolved]
  - Excessive cerumen production [Unknown]
  - Haemorrhoids thrombosed [Unknown]
  - Liver function test abnormal [Unknown]
  - Bronchitis [Unknown]
  - Sinusitis [Unknown]
  - Dermatitis [Unknown]
  - Diarrhoea [Unknown]
  - Lipoma [Unknown]
  - Osteochondroma [Unknown]
  - Intercostal neuralgia [Unknown]
  - Laryngitis [Unknown]
  - Syncope [Unknown]
  - Gastroenteritis [Unknown]
  - Paraesthesia [Unknown]
  - Pharyngitis [Unknown]
  - Herpes zoster [Unknown]
  - Eczema [Unknown]
  - Myalgia [Unknown]
  - Rotator cuff syndrome [Unknown]

NARRATIVE: CASE EVENT DATE: 2011
